FAERS Safety Report 4705295-2 (Version None)
Quarter: 2005Q2

REPORT INFORMATION
  Report Type: 
  Country: None (occurrence: None)
  Receive Date: 20050628
  Receipt Date: 20050613
  Transmission Date: 20051028
  Serious: Yes (Hospitalization)
  Sender: FDA-Public Use
  Company Number: JP_050506498

PATIENT
  Age: 65 Year
  Sex: Male
  Weight: 58 kg

DRUGS (5)
  1. GEMZAR [Suspect]
     Indication: PANCREATIC CARCINOMA
     Dosage: 1600 MG OTHER
     Route: 050
     Dates: start: 20050420
  2. NASEA (RAMOSETRON HYDROCHLORIDE) [Concomitant]
  3. URSODIOL [Concomitant]
  4. LENDORM [Concomitant]
  5. ALESION (EPINASTINE HYDROCHLORIDE) [Concomitant]

REACTIONS (5)
  - COLD SWEAT [None]
  - DRUG ERUPTION [None]
  - MYOCARDIAL INFARCTION [None]
  - PIGMENTATION DISORDER [None]
  - PLATELET COUNT INCREASED [None]
